FAERS Safety Report 16071367 (Version 7)
Quarter: 2022Q1

REPORT INFORMATION
  Report Type: Spontaneous
  Country: US (occurrence: US)
  Receive Date: 20190314
  Receipt Date: 20220104
  Transmission Date: 20220424
  Serious: No
  Sender: FDA-Public Use
  Company Number: US-PFIZER INC-2019109438

PATIENT
  Age: 53 Year
  Sex: Male
  Weight: 125 kg

DRUGS (2)
  1. LYRICA [Suspect]
     Active Substance: PREGABALIN
     Indication: Polyneuropathy
     Dosage: 200 MG, 2X/DAY (TAKE ONE CAPSULE TWICE A DAY/SIG: TAKE ONE CAPSULE BY MOUTH TWICE A DAY)
     Route: 048
     Dates: start: 20180829, end: 20190228
  2. LYRICA [Suspect]
     Active Substance: PREGABALIN
     Indication: Neuropathy peripheral
     Dosage: 50 MG, 2X/DAY (TAKE 1 CAPSULE 2 TIMES DAILY/SIG: TAKE 1 CAPSULE BY MOUTH 2 TIMES DAILY FOR 180 DAYS)
     Route: 048
     Dates: start: 20190129

REACTIONS (1)
  - Somnolence [Unknown]
